FAERS Safety Report 10802155 (Version 3)
Quarter: 2015Q2

REPORT INFORMATION
  Report Type: Spontaneous
  Country: US (occurrence: US)
  Receive Date: 20150217
  Receipt Date: 20150423
  Transmission Date: 20150821
  Serious: Yes (Death, Hospitalization, Other)
  Sender: FDA-Public Use
  Company Number: US-MERCK-1502USA006760

PATIENT
  Age: 66 Year
  Sex: Male
  Weight: 95.5 kg

DRUGS (9)
  1. CYTOXAN [Suspect]
     Active Substance: CYCLOPHOSPHAMIDE
     Indication: PLASMA CELL MYELOMA
     Dosage: 700 MG, QW
     Route: 048
     Dates: start: 20140805, end: 20141125
  2. COREG [Concomitant]
     Active Substance: CARVEDILOL
     Indication: HYPERTENSION
     Dosage: 1/2 TABLET
     Route: 048
  3. ATENOLOL. [Concomitant]
     Active Substance: ATENOLOL
     Indication: ATRIAL FIBRILLATION
     Dosage: 25 MG, UNK
     Route: 048
  4. VELCADE [Suspect]
     Active Substance: BORTEZOMIB
     Indication: PLASMA CELL MYELOMA
     Dosage: 1.3 MG/M2, QW
     Route: 058
     Dates: start: 20140805, end: 20141125
  5. ZOMETA [Concomitant]
     Active Substance: ZOLEDRONIC ACID
  6. NEXIUM [Concomitant]
     Active Substance: ESOMEPRAZOLE MAGNESIUM
     Indication: DYSPEPSIA
     Dosage: 40 MG, UNK
     Route: 048
  7. DEXAMETHASONE. [Suspect]
     Active Substance: DEXAMETHASONE
     Indication: PLASMA CELL MYELOMA
     Dosage: 20 MG, 2 DAYS/WEEK
     Route: 048
     Dates: start: 20130910, end: 20150223
  8. AREDIA [Concomitant]
     Active Substance: PAMIDRONATE DISODIUM
     Dosage: 4 MG, UNK
     Route: 048
     Dates: start: 20141210, end: 20150131
  9. ASPIRIN. [Concomitant]
     Active Substance: ASPIRIN
     Indication: PROPHYLAXIS
     Dosage: 81 MG, UNK
     Route: 048

REACTIONS (13)
  - Dyspnoea [Unknown]
  - Fluid overload [Unknown]
  - Cardiomegaly [Unknown]
  - Anaemia of malignant disease [Not Recovered/Not Resolved]
  - Atrial fibrillation [Not Recovered/Not Resolved]
  - Plasma cell myeloma [Fatal]
  - Osteolysis [Not Recovered/Not Resolved]
  - Hypercalcaemia of malignancy [Recovering/Resolving]
  - Hypercalcaemia [Recovered/Resolved]
  - Haemorrhoidal haemorrhage [Unknown]
  - Confusional state [Recovering/Resolving]
  - Hypoxia [Unknown]
  - Dyspepsia [Unknown]

NARRATIVE: CASE EVENT DATE: 20140903
